FAERS Safety Report 24544422 (Version 1)
Quarter: 2024Q4

REPORT INFORMATION
  Report Type: Report from Study
  Country: CN (occurrence: CN)
  Receive Date: 20241024
  Receipt Date: 20241024
  Transmission Date: 20250115
  Serious: Yes (Other)
  Sender: ROCHE
  Company Number: CN-ROCHE-10000110270

PATIENT

DRUGS (3)
  1. RITUXIMAB [Suspect]
     Active Substance: RITUXIMAB
     Indication: Acquired haemophilia
     Route: 065
  2. CYCLOPHOSPHAMIDE [Suspect]
     Active Substance: CYCLOPHOSPHAMIDE
     Indication: Acquired haemophilia
     Route: 065
  3. CYCLOSPORINE [Suspect]
     Active Substance: CYCLOSPORINE
     Indication: Acquired haemophilia
     Route: 065

REACTIONS (8)
  - Myelosuppression [Unknown]
  - Infection [Unknown]
  - Pneumonia [Unknown]
  - Skin infection [Unknown]
  - Soft tissue infection [Unknown]
  - Urinary tract infection [Unknown]
  - Cushing^s syndrome [Unknown]
  - Off label use [Unknown]
